FAERS Safety Report 5442658-4 (Version None)
Quarter: 2007Q3

REPORT INFORMATION
  Report Type: 
  Country: None (occurrence: None)
  Receive Date: 20070904
  Receipt Date: 20070821
  Transmission Date: 20080115
  Serious: Yes (Other)
  Sender: FDA-Public Use
  Company Number: US-SHR-US-2006-013528

PATIENT
  Age: 50 Year
  Sex: Female

DRUGS (7)
  1. BETASERON [Suspect]
     Dosage: 8 MIU, EVERY 2D
     Route: 058
     Dates: start: 20050324, end: 20060102
  2. BETASERON [Suspect]
     Dosage: 8 MIU, EVERY 2D
     Route: 058
     Dates: start: 20060430
  3. BETASERON [Suspect]
     Dosage: 2 MIU, EVERY 2D
     Route: 058
     Dates: start: 20070730, end: 20070806
  4. VICODIN [Concomitant]
  5. NEURONTIN [Concomitant]
  6. EFFEXOR [Concomitant]
  7. PROVIGIL [Concomitant]

REACTIONS (9)
  - DIZZINESS [None]
  - FATIGUE [None]
  - HYPOAESTHESIA [None]
  - INTERVERTEBRAL DISC PROTRUSION [None]
  - PARAESTHESIA [None]
  - SOMNOLENCE [None]
  - STRESS [None]
  - VERTIGO [None]
  - VISION BLURRED [None]
